FAERS Safety Report 5987563-X (Version None)
Quarter: 2008Q4

REPORT INFORMATION
  Report Type: 
  Country: None (occurrence: None)
  Receive Date: 20081209
  Receipt Date: 20081202
  Transmission Date: 20090506
  Serious: Yes (Other)
  Sender: FDA-Public Use
  Company Number: US-WYE-H05185908

PATIENT
  Sex: Female

DRUGS (7)
  1. PREMPRO/PREMPHASE [Suspect]
     Indication: HORMONE REPLACEMENT THERAPY
  2. PREMARIN [Suspect]
  3. PROGESTERONE [Suspect]
  4. TESTOSTERONE [Suspect]
  5. FEMHRT [Suspect]
  6. MEDROXYPROGESTERONE ACETATE [Suspect]
     Indication: HORMONE REPLACEMENT THERAPY
  7. PROVERA [Suspect]

REACTIONS (1)
  - BREAST CANCER METASTATIC [None]
